FAERS Safety Report 5838741-1 (Version None)
Quarter: 2008Q3

REPORT INFORMATION
  Report Type: 
  Country: None (occurrence: None)
  Receive Date: 20080808
  Receipt Date: 20080725
  Transmission Date: 20090109
  Serious: Yes (Other)
  Sender: FDA-Public Use
  Company Number: US-ASTRAZENECA-2008UW15512

PATIENT
  Age: 729 Month
  Sex: Female
  Weight: 94.3 kg

DRUGS (11)
  1. ARIMIDEX [Suspect]
     Indication: BREAST CANCER
     Route: 048
     Dates: start: 20060301
  2. BENICAR [Concomitant]
  3. CLONIDINE [Concomitant]
  4. TORSEMIDE [Concomitant]
  5. HYDRALAZINE HCL [Concomitant]
  6. ALLEGRA [Concomitant]
  7. ADVAIR DISKUS 100/50 [Concomitant]
  8. WELLBUTRIN XL [Concomitant]
  9. ALBUTEROL [Concomitant]
     Route: 055
  10. HERBAL MEDICATION [Concomitant]
  11. SONATA [Concomitant]

REACTIONS (7)
  - BREAST CALCIFICATIONS [None]
  - BREAST LUMP REMOVAL [None]
  - HOT FLUSH [None]
  - HYPERTENSION [None]
  - INTERVERTEBRAL DISC OPERATION [None]
  - SPINAL FUSION SURGERY [None]
  - WEIGHT INCREASED [None]
